FAERS Safety Report 5596468-8 (Version None)
Quarter: 2008Q1

REPORT INFORMATION
  Report Type: 
  Country: None (occurrence: None)
  Receive Date: 20080118
  Receipt Date: 20080110
  Transmission Date: 20080703
  Serious: Yes (Disabling)
  Sender: FDA-Public Use
  Company Number: FR-PFIZER INC-2007100780

PATIENT
  Sex: Male
  Weight: 103 kg

DRUGS (5)
  1. TAHOR [Suspect]
     Indication: HYPERCHOLESTEROLAEMIA
     Dates: start: 19980702, end: 20071201
  2. MONO-TILDIEM [Concomitant]
     Dosage: TEXT:200 LP
     Route: 048
  3. PLAVIX [Concomitant]
     Route: 048
  4. GLUCOPHAGE [Concomitant]
     Dosage: TEXT:850
     Route: 048
  5. APROVEL [Concomitant]
     Dosage: TEXT:150
     Route: 048

REACTIONS (2)
  - TENDON RUPTURE [None]
  - TENDONITIS [None]
